FAERS Safety Report 15594496 (Version 2)
Quarter: 2018Q4

REPORT INFORMATION
  Report Type: Spontaneous
  Country: US (occurrence: US)
  Receive Date: 20181106
  Receipt Date: 20181127
  Transmission Date: 20190205
  Serious: No
  Sender: FDA-Public Use
  Company Number: US-TOLMAR, INC.-TOLG20180626

PATIENT
  Age: 69 Year
  Sex: Male

DRUGS (2)
  1. MANY (UNSPECIFIED) [Concomitant]
     Indication: PRODUCT USED FOR UNKNOWN INDICATION
     Dosage: UNKNOWN
     Route: 065
  2. METRONIDAZOLE. [Suspect]
     Active Substance: METRONIDAZOLE
     Indication: ROSACEA
     Dosage: UNKNOWN
     Route: 061
     Dates: start: 20151116, end: 2018

REACTIONS (4)
  - Expired product administered [Unknown]
  - Drug ineffective [Not Recovered/Not Resolved]
  - Rosacea [Recovered/Resolved]
  - Application site pain [Recovered/Resolved]

NARRATIVE: CASE EVENT DATE: 20151116
